FAERS Safety Report 13007657 (Version 1)
Quarter: 2016Q4

REPORT INFORMATION
  Report Type: Spontaneous
  Country: BR (occurrence: BR)
  Receive Date: 20161207
  Receipt Date: 20161207
  Transmission Date: 20170207
  Serious: Yes (Death, Other)
  Sender: FDA-Public Use
  Company Number: BR-GILEAD-2016-0246954

PATIENT
  Age: 66 Year
  Sex: Male

DRUGS (2)
  1. DACLATASVIR. [Concomitant]
     Active Substance: DACLATASVIR
     Dosage: 60 MG, UNK
     Dates: start: 201610, end: 201611
  2. SOVALDI [Suspect]
     Active Substance: SOFOSBUVIR
     Indication: HEPATITIS C
     Dosage: 400 MG, UNK
     Route: 048
     Dates: start: 201610, end: 201611

REACTIONS (4)
  - Abdominal distension [Fatal]
  - Pain [Fatal]
  - Haematemesis [Fatal]
  - Death [Fatal]
